FAERS Safety Report 8422021-4 (Version None)
Quarter: 2012Q2

REPORT INFORMATION
  Report Type: 
  Country: None (occurrence: None)
  Receive Date: 20120608
  Receipt Date: 20120529
  Transmission Date: 20120825
  Serious: Yes (Hospitalization)
  Sender: FDA-Public Use
  Company Number: DE-FRI-1000031076

PATIENT
  Sex: Male

DRUGS (1)
  1. MEMANTINE HCL [Suspect]

REACTIONS (1)
  - CARDIAC DISORDER [None]
